FAERS Safety Report 16844842 (Version 1)
Quarter: 2019Q3

REPORT INFORMATION
  Report Type: Spontaneous
  Country: US (occurrence: US)
  Receive Date: 20190924
  Receipt Date: 20190924
  Transmission Date: 20191005
  Serious: No
  Sender: FDA-Public Use
  Company Number: US-PFIZER INC-2019407019

PATIENT
  Age: 66 Year

DRUGS (1)
  1. CELEBREX [Suspect]
     Active Substance: CELECOXIB
     Indication: BACK DISORDER
     Dosage: 200 MG, 2X/DAY

REACTIONS (3)
  - Intentional product misuse [Unknown]
  - Drug effective for unapproved indication [Unknown]
  - Off label use [Unknown]
